FAERS Safety Report 13097796 (Version 2)
Quarter: 2017Q1

REPORT INFORMATION
  Report Type: Report from Study
  Country: US (occurrence: US)
  Receive Date: 20170109
  Receipt Date: 20170112
  Transmission Date: 20170428
  Serious: Yes (Life-Threatening)
  Sender: FDA-Public Use
  Company Number: US-PFIZER INC-2017003002

PATIENT

DRUGS (2)
  1. TOPOTECAN HYDROCHLORIDE. [Suspect]
     Active Substance: TOPOTECAN HYDROCHLORIDE
     Indication: NON-SMALL CELL LUNG CANCER
     Dosage: 4.0 MG/M2, CYCLIC (ON DAYS 1, 8, AND 15)
  2. BEVACIZUMAB [Suspect]
     Active Substance: BEVACIZUMAB
     Indication: NON-SMALL CELL LUNG CANCER
     Dosage: 10 MG/M2, CYCLIC ( ON DAYS 1 AND 15 AS INTRAVENOUS INFUSIONS ON A 28-DAY TREATMENT CYCLE)

REACTIONS (1)
  - Pulmonary embolism [Unknown]
